FAERS Safety Report 5521981-9 (Version None)
Quarter: 2007Q4

REPORT INFORMATION
  Report Type: 
  Country: None (occurrence: None)
  Receive Date: 20071120
  Receipt Date: 20070907
  Transmission Date: 20080405
  Serious: No
  Sender: FDA-Public Use
  Company Number: US-BRISTOL-MYERS SQUIBB COMPANY-13856109

PATIENT
  Age: 56 Year
  Sex: Male
  Weight: 82 kg

DRUGS (6)
  1. AVALIDE [Suspect]
     Dates: start: 20020301
  2. HYDRALAZINE HCL [Suspect]
     Indication: HYPERTENSION
     Route: 048
     Dates: start: 20020301
  3. TRIAMTERENE AND HYDROCHLOROTHIAZIDE [Suspect]
     Dates: start: 20020301
  4. CATAPRES-TTS-1 [Suspect]
     Dates: start: 20020301
  5. ALTACE [Suspect]
     Dates: start: 20020301
  6. TENEX [Suspect]
     Dates: start: 20020301

REACTIONS (3)
  - BLOOD PRESSURE INADEQUATELY CONTROLLED [None]
  - HYPERTENSION [None]
  - RENAL IMPAIRMENT [None]
